FAERS Safety Report 8475061-3 (Version None)
Quarter: 2012Q2

REPORT INFORMATION
  Report Type: 
  Country: None (occurrence: None)
  Receive Date: 20120628
  Receipt Date: 20120619
  Transmission Date: 20120825
  Serious: Yes (Other)
  Sender: FDA-Public Use
  Company Number: BR-NOVOPROD-348129

PATIENT
  Age: 65 Year
  Sex: Male
  Weight: 110 kg

DRUGS (3)
  1. VICTOZA [Suspect]
     Indication: TYPE 2 DIABETES MELLITUS
     Dosage: 0.6 (UNITS UNSPECIFIED)
     Route: 065
     Dates: start: 20111201
  2. VICTOZA [Suspect]
     Dosage: 1.2 MG, QD
     Route: 065
  3. LANTUS [Concomitant]

REACTIONS (3)
  - DIABETES MELLITUS INADEQUATE CONTROL [None]
  - INCORRECT STORAGE OF DRUG [None]
  - COLITIS ULCERATIVE [None]
